FAERS Safety Report 26214140 (Version 1)
Quarter: 2025Q4

REPORT INFORMATION
  Report Type: Spontaneous
  Country: EU (occurrence: EU)
  Receive Date: 20251230
  Receipt Date: 20251230
  Transmission Date: 20260117
  Serious: Yes (Other)
  Sender: Corza Medical
  Company Number: EU-CORZA MEDICAL GMBH-2025-ES-002343

PATIENT

DRUGS (1)
  1. TACHOSIL [Suspect]
     Active Substance: FIBRINOGEN HUMAN\HUMAN THROMBIN
     Indication: Post procedural haemorrhage
     Dosage: UNK
     Route: 065

REACTIONS (2)
  - Pseudomeningocele [Unknown]
  - Dural tear [Unknown]
